FAERS Safety Report 15255351 (Version 1)
Quarter: 2018Q3

REPORT INFORMATION
  Report Type: Spontaneous
  Country: TW (occurrence: TW)
  Receive Date: 20180808
  Receipt Date: 20180808
  Transmission Date: 20181010
  Serious: Yes (Other)
  Sender: FDA-Public Use
  Company Number: TW-HQ SPECIALTY-TW-2018INT000130

PATIENT
  Age: 60 Year
  Sex: Female

DRUGS (3)
  1. PACLITAXEL. [Suspect]
     Active Substance: PACLITAXEL
     Dosage: 110 MG, PER WEEK (5 COURSES)
  2. PACLITAXEL. [Suspect]
     Active Substance: PACLITAXEL
     Indication: BREAST CANCER STAGE II
     Dosage: 120 MG, PER WEEK (2 COURSES)
  3. PACLITAXEL. [Suspect]
     Active Substance: PACLITAXEL
     Dosage: 115 MG, PER WEEK (5 COURSES)

REACTIONS (1)
  - Cystoid macular oedema [Recovering/Resolving]
